FAERS Safety Report 11244193 (Version 1)
Quarter: 2015Q3

REPORT INFORMATION
  Report Type: Spontaneous
  Country: GB (occurrence: GB)
  Receive Date: 20150707
  Receipt Date: 20150707
  Transmission Date: 20151125
  Serious: Yes (Other)
  Sender: FDA-Public Use
  Company Number: GB-COREPHARMA LLC-2015COR00135

PATIENT
  Age: 45 Year
  Sex: Male

DRUGS (1)
  1. AMPHETAMINE [Suspect]
     Active Substance: AMPHETAMINE
     Dosage: UNK

REACTIONS (2)
  - Congestive cardiomyopathy [Recovering/Resolving]
  - Cardiac failure acute [Recovering/Resolving]
